FAERS Safety Report 16769972 (Version 4)
Quarter: 2021Q2

REPORT INFORMATION
  Report Type: Report from Study
  Country: US (occurrence: US)
  Receive Date: 20190904
  Receipt Date: 20210625
  Transmission Date: 20210716
  Serious: Yes (Hospitalization)
  Sender: FDA-Public Use
  Company Number: US-ROCHE-2397621

PATIENT
  Age: 72 Year
  Sex: Female
  Weight: 57.8 kg

DRUGS (21)
  1. POLYETHYLENE GLYCOL [Concomitant]
     Active Substance: POLYETHYLENE GLYCOLS
     Route: 048
  2. AMLODIPINE [Concomitant]
     Active Substance: AMLODIPINE BESYLATE
     Indication: HYPERTENSION
     Route: 048
     Dates: start: 20180927
  3. FERROUS SULFATE. [Concomitant]
     Active Substance: FERROUS SULFATE
     Indication: MALABSORPTION
     Route: 048
     Dates: start: 20180927
  4. CYCLOSPORINE. [Concomitant]
     Active Substance: CYCLOSPORINE
     Indication: DRY EYE
     Route: 047
     Dates: start: 20141013
  5. DOCUSATE;SENNA [Concomitant]
     Active Substance: DOCUSATE\SENNOSIDES
     Route: 048
     Dates: start: 20190412
  6. PACKED RED BLOOD CELL [Concomitant]
     Active Substance: HUMAN RED BLOOD CELL
     Dosage: DOSE: 1 UNIT
     Route: 042
     Dates: start: 20190826, end: 20190826
  7. TYLENOL [Concomitant]
     Active Substance: ACETAMINOPHEN
     Indication: LIMB INJURY
     Route: 048
     Dates: start: 20190803, end: 20190805
  8. POLATUZUMAB VEDOTIN. [Suspect]
     Active Substance: POLATUZUMAB VEDOTIN
     Indication: DIFFUSE LARGE B-CELL LYMPHOMA
     Dosage: FOR 6 CYCLES?DATE OF MOST RECENT DOSE OF POLATUZUMAB VEDOTIN PRIOR TO SAE ONSET: 16/AUG/2019
     Route: 042
     Dates: start: 20190501
  9. AMOXICILLIN. [Concomitant]
     Active Substance: AMOXICILLIN
     Route: 048
  10. ACETAMINOPHEN. [Concomitant]
     Active Substance: ACETAMINOPHEN
     Route: 048
  11. METHOTREXATE. [Concomitant]
     Active Substance: METHOTREXATE
     Indication: LUMBAR PUNCTURE
     Route: 037
     Dates: start: 20190814, end: 20190814
  12. CYCLOPHOSPHAMIDE. [Suspect]
     Active Substance: CYCLOPHOSPHAMIDE
     Indication: DIFFUSE LARGE B-CELL LYMPHOMA
     Dosage: FOR 6 CYCLES?DATE OF MOST RECENT DOSE OF CYCLOPHOSPHAMIDE 1178 MG PRIOR TO SAE ONSET: 16/AUG/2019
     Route: 042
     Dates: start: 20190501
  13. PREDNISONE. [Suspect]
     Active Substance: PREDNISONE
     Indication: DIFFUSE LARGE B-CELL LYMPHOMA
     Dosage: FOR 6 CYCLES?DATE OF MOST RECENT DOSE OF PREDNISONE 100 MG PRIOR TO SAE BECAME SERIOUS: 20/AUG/2019
     Route: 048
     Dates: start: 20190501
  14. OXYCODONE [Concomitant]
     Active Substance: OXYCODONE
     Route: 048
     Dates: start: 20190412
  15. ELAVIL [Concomitant]
     Active Substance: AMITRIPTYLINE HYDROCHLORIDE
     Indication: INSOMNIA
     Route: 048
  16. CELEBREX [Concomitant]
     Active Substance: CELECOXIB
     Indication: OSTEOARTHRITIS
     Route: 048
     Dates: start: 20140430
  17. RITUXIMAB. [Suspect]
     Active Substance: RITUXIMAB
     Indication: DIFFUSE LARGE B-CELL LYMPHOMA
     Dosage: FOR 8 CYCLES?DATE OF MOST RECENT DOSE OF RITUXIMAB 589 MG PRIOR TO SAE ONSET: 16/AUG/2019
     Route: 042
     Dates: start: 20190501
  18. DOXORUBICIN [Suspect]
     Active Substance: DOXORUBICIN
     Indication: DIFFUSE LARGE B-CELL LYMPHOMA
     Dosage: FOR 6 CYCLES?DATE OF MOST RECENT DOSE OF DOXORUBICIN OF 79 MG PRIOR TO SAE ONSET: 16/AUG/2019
     Route: 042
     Dates: start: 20190501
  19. VITAMIN D [COLECALCIFEROL] [Concomitant]
     Active Substance: CHOLECALCIFEROL
     Route: 048
     Dates: start: 20141013
  20. PLACEBO [Suspect]
     Active Substance: UNSPECIFIED INGREDIENT
     Indication: DIFFUSE LARGE B-CELL LYMPHOMA
     Dosage: FOR 6 CYCLES?DATE OF MOST RECENT DOSE OF PLACEBO PRIOR TO SAE ONSET: 16/AUG/2019
     Route: 042
     Dates: start: 20190501
  21. GLYCERIN;POLYSORBATE 80 [Concomitant]
     Indication: DRY EYE
     Route: 047

REACTIONS (1)
  - Mucosal inflammation [Recovered/Resolved]

NARRATIVE: CASE EVENT DATE: 20190816
